FAERS Safety Report 5408191-0 (Version None)
Quarter: 2007Q3

REPORT INFORMATION
  Report Type: 
  Country: None (occurrence: None)
  Receive Date: 20070808
  Receipt Date: 20070727
  Transmission Date: 20080115
  Serious: Yes (Hospitalization, Other)
  Sender: FDA-Public Use
  Company Number: US-BAYER-200712524BWH

PATIENT
  Sex: Female

DRUGS (1)
  1. CIPROFLOXACIN [Suspect]
     Indication: DRUG USE FOR UNKNOWN INDICATION
     Route: 048

REACTIONS (15)
  - ACUTE GENERALISED EXANTHEMATOUS PUSTULOSIS [None]
  - ADVERSE DRUG REACTION [None]
  - ASTHENIA [None]
  - DIZZINESS [None]
  - DRUG ERUPTION [None]
  - DYSPNOEA [None]
  - EOSINOPHILIA [None]
  - ERYTHEMA MULTIFORME [None]
  - PAIN [None]
  - RASH [None]
  - RASH PRURITIC [None]
  - SCAR [None]
  - SKIN REACTION [None]
  - STEVENS-JOHNSON SYNDROME [None]
  - TOXIC EPIDERMAL NECROLYSIS [None]
